FAERS Safety Report 6620472-1 (Version None)
Quarter: 2010Q1

REPORT INFORMATION
  Report Type: 
  Country: None (occurrence: None)
  Receive Date: 20100308
  Receipt Date: 20100308
  Transmission Date: 20100710
  Serious: No
  Sender: FDA-Public Use
  Company Number: None

PATIENT
  Age: 41 Year
  Sex: Female
  Weight: 61.2356 kg

DRUGS (1)
  1. LEVAQUIN [Suspect]
     Indication: SKIN INFECTION
     Dosage: 1 TABLET ONCE A DAY PO
     Route: 048
     Dates: start: 20100302, end: 20100303

REACTIONS (4)
  - GAIT DISTURBANCE [None]
  - SWELLING [None]
  - TENDON DISORDER [None]
  - TENDON PAIN [None]
